FAERS Safety Report 8347724-1 (Version None)
Quarter: 2012Q2

REPORT INFORMATION
  Report Type: 
  Country: None (occurrence: None)
  Receive Date: 20120509
  Receipt Date: 20120426
  Transmission Date: 20120825
  Serious: Yes (Hospitalization, Other)
  Sender: FDA-Public Use
  Company Number: US-ELI_LILLY_AND_COMPANY-US201204010011

PATIENT
  Age: 65 Year
  Sex: Female

DRUGS (1)
  1. FORTEO [Suspect]
     Indication: OSTEOPOROSIS
     Dosage: UNK, UNKNOWN

REACTIONS (4)
  - CARDIAC FAILURE CONGESTIVE [None]
  - SHOULDER ARTHROPLASTY [None]
  - PNEUMONIA [None]
  - SEPTIC SHOCK [None]
